FAERS Safety Report 4953425-X (Version None)
Quarter: 2006Q1

REPORT INFORMATION
  Report Type: 
  Country: None (occurrence: None)
  Receive Date: 20060131
  Receipt Date: 20051220
  Transmission Date: 20060701
  Serious: Yes (Hospitalization, Other)
  Sender: FDA-Public Use
  Company Number: 8009594

PATIENT
  Age: 49 Year
  Sex: Male
  Weight: 117 kg

DRUGS (6)
  1. KEPPRA [Suspect]
     Indication: CONVULSION
     Dosage: 1500 MG 2/D PO
     Route: 048
     Dates: start: 20040603, end: 20040719
  2. LAMICTAL [Concomitant]
  3. ZONEGRAN [Concomitant]
  4. KLONOPIN [Concomitant]
  5. NIFEDIPINE [Concomitant]
  6. FLONASE [Concomitant]

REACTIONS (1)
  - SUICIDAL IDEATION [None]
